FAERS Safety Report 8833094 (Version 1)
Quarter: 2012Q4

REPORT INFORMATION
  Report Type: 
  Country: US (occurrence: US)
  Receive Date: 20121010
  Receipt Date: 20121010
  Transmission Date: 20130627
  Serious: Yes (Other)
  Sender: FDA-Public Use
  Company Number: US-PFIZER INC-2012246456

PATIENT
  Age: 27 Year
  Sex: Female
  Weight: 78 kg

DRUGS (1)
  1. DEPO-PROVERA [Suspect]
     Indication: CONTRACEPTION
     Dosage: UNK
     Route: 030
     Dates: start: 1997

REACTIONS (5)
  - Ovarian cyst [Unknown]
  - Endometrial disorder [Unknown]
  - Incorrect route of drug administration [Unknown]
  - Metrorrhagia [Unknown]
  - Injection site pain [Unknown]
